FAERS Safety Report 9265993 (Version 2)
Quarter: 2013Q2

REPORT INFORMATION
  Report Type: Spontaneous
  Country: JP (occurrence: JP)
  Receive Date: 20130501
  Receipt Date: 20130522
  Transmission Date: 20140414
  Serious: Yes (Hospitalization)
  Sender: FDA-Public Use
  Company Number: JP-B.I. PHARMACEUTICALS,INC./RIDGEFIELD-2013-BI-11816NB

PATIENT
  Age: 87 Year
  Sex: Male
  Weight: 48.2 kg

DRUGS (5)
  1. PRAZAXA [Suspect]
     Indication: ATRIAL FIBRILLATION
     Dosage: 150 MG
     Route: 048
     Dates: start: 20130122, end: 20130201
  2. MYSLEE [Concomitant]
     Indication: INSOMNIA
     Dosage: 5 MG
     Route: 048
  3. VEGETAMIN-A [Concomitant]
     Indication: INSOMNIA
     Dosage: NR
     Route: 048
  4. VASOLAN [Concomitant]
     Indication: ATRIAL FIBRILLATION
     Dosage: 120 MG
     Route: 048
     Dates: start: 20130119
  5. PRORENAL [Concomitant]
     Indication: INSOMNIA
     Dosage: 15 MCG
     Route: 048
     Dates: start: 20121024, end: 20130201

REACTIONS (3)
  - Urinary retention [Not Recovered/Not Resolved]
  - Anal haemorrhage [Recovered/Resolved]
  - Haemorrhagic diathesis [Recovered/Resolved]
